FAERS Safety Report 17267154 (Version 3)
Quarter: 2022Q1

REPORT INFORMATION
  Report Type: Spontaneous
  Country: US (occurrence: US)
  Receive Date: 20200114
  Receipt Date: 20220108
  Transmission Date: 20220423
  Serious: Yes (Death, Other)
  Sender: FDA-Public Use
  Company Number: US-AMGEN-USASP2020003790

PATIENT

DRUGS (9)
  1. BLINATUMOMAB [Suspect]
     Active Substance: BLINATUMOMAB
     Indication: B precursor type acute leukaemia
     Dosage: UNK
     Route: 065
  2. PURINETHOL [Concomitant]
     Active Substance: MERCAPTOPURINE
     Indication: Precursor B-lymphoblastic lymphoma
  3. ONCOVIN [Concomitant]
     Active Substance: VINCRISTINE SULFATE
     Indication: Precursor B-lymphoblastic lymphoma
  4. METHOTREXATE [Concomitant]
     Active Substance: METHOTREXATE
     Indication: Precursor B-lymphoblastic lymphoma
  5. PREDNISONE [Concomitant]
     Active Substance: PREDNISONE
     Indication: Precursor B-lymphoblastic lymphoma
  6. CYCLOPHOSPHAMIDE [Concomitant]
     Active Substance: CYCLOPHOSPHAMIDE
  7. DEXAMETHASONE [Concomitant]
     Active Substance: DEXAMETHASONE
  8. CYTARABINE [Concomitant]
     Active Substance: CYTARABINE
     Dosage: 0.5 GRAM/ METER SQAURE
  9. INOTUZUMAB OZOGAMICIN [Concomitant]
     Active Substance: INOTUZUMAB OZOGAMICIN

REACTIONS (11)
  - Gun shot wound [Fatal]
  - Dementia [Fatal]
  - Physical deconditioning [Fatal]
  - End stage renal disease [Fatal]
  - Myelodysplastic syndrome [Fatal]
  - Death [Fatal]
  - Acute myeloid leukaemia [Fatal]
  - Venoocclusive disease [Fatal]
  - Sepsis [Fatal]
  - Infection [Fatal]
  - B precursor type acute leukaemia [Unknown]
